FAERS Safety Report 9518952 (Version 3)
Quarter: 2014Q2

REPORT INFORMATION
  Report Type: Spontaneous
  Country: US (occurrence: US)
  Receive Date: 20130912
  Receipt Date: 20140526
  Transmission Date: 20141212
  Serious: No
  Sender: FDA-Public Use
  Company Number: US-PFIZER INC-2013260128

PATIENT
  Age: 47 Year
  Sex: Female

DRUGS (1)
  1. CELEBREX [Suspect]
     Dosage: UNK

REACTIONS (2)
  - Drug hypersensitivity [Unknown]
  - Rash [Unknown]
